FAERS Safety Report 9656771 (Version 2)
Quarter: 2013Q4

REPORT INFORMATION
  Report Type: Spontaneous
  Country: US (occurrence: US)
  Receive Date: 20131030
  Receipt Date: 20131204
  Transmission Date: 20140711
  Serious: Yes (Hospitalization)
  Sender: FDA-Public Use
  Company Number: US-PFIZER INC-2013304731

PATIENT
  Age: 55 Year
  Sex: Female

DRUGS (3)
  1. NEURONTIN [Suspect]
     Dosage: 300 MG, UNK
  2. PROCARDIA XL [Suspect]
     Dosage: 90 MG, UNK
  3. ALDACTONE [Suspect]
     Dosage: 25 MG, UNK

REACTIONS (1)
  - Cardiac disorder [Unknown]
